FAERS Safety Report 22007592 (Version 1)
Quarter: 2023Q1

REPORT INFORMATION
  Report Type: Spontaneous
  Country: US (occurrence: US)
  Receive Date: 20230218
  Receipt Date: 20230218
  Transmission Date: 20230418
  Serious: Yes (Death, Other)
  Sender: FDA-Public Use
  Company Number: US-AMGEN-USASP2023028544

PATIENT
  Age: 64 Year
  Sex: Male

DRUGS (1)
  1. BLINCYTO [Suspect]
     Active Substance: BLINATUMOMAB
     Indication: Acute biphenotypic leukaemia
     Dosage: UNK
     Route: 065

REACTIONS (5)
  - Opportunistic infection [Fatal]
  - Bone marrow failure [Unknown]
  - Neurotoxicity [Recovered/Resolved]
  - Off label use [Unknown]
  - Confusional state [Recovered/Resolved]
